FAERS Safety Report 19512058 (Version 2)
Quarter: 2021Q4

REPORT INFORMATION
  Report Type: Spontaneous
  Country: ES (occurrence: ES)
  Receive Date: 20210709
  Receipt Date: 20211119
  Transmission Date: 20220303
  Serious: Yes (Life-Threatening, Other)
  Sender: FDA-Public Use
  Company Number: ES-BAXTER-2021BAX000002

PATIENT
  Age: 52 Year
  Sex: Female

DRUGS (10)
  1. PREDNISONE [Suspect]
     Active Substance: PREDNISONE
     Indication: Diffuse large B-cell lymphoma
     Dosage: UNK UNK, CYCLE
     Route: 065
     Dates: start: 2020
  2. PREDNISONE [Suspect]
     Active Substance: PREDNISONE
     Dosage: UNK, 2ND R-CHOP
     Dates: start: 2020
  3. VINCRISTINE [Suspect]
     Active Substance: VINCRISTINE
     Indication: Diffuse large B-cell lymphoma
     Dosage: UNK UNK, CYCLE
     Route: 065
     Dates: start: 2020
  4. VINCRISTINE [Suspect]
     Active Substance: VINCRISTINE
     Dosage: UNK, 2ND R-CHOP
  5. GENOXAL [Suspect]
     Active Substance: CYCLOPHOSPHAMIDE
     Indication: Diffuse large B-cell lymphoma
     Dosage: UNK UNK, CYCLE
     Route: 065
     Dates: start: 2020
  6. GENOXAL [Suspect]
     Active Substance: CYCLOPHOSPHAMIDE
     Dosage: UNK, 2ND R-CHOP
  7. DOXORUBICIN [Suspect]
     Active Substance: DOXORUBICIN
     Indication: Diffuse large B-cell lymphoma
     Dosage: UNK UNK, CYCLE
     Route: 065
     Dates: start: 2020
  8. DOXORUBICIN [Suspect]
     Active Substance: DOXORUBICIN
     Dosage: UNK, 2ND R-CHOP
  9. RITUXIMAB [Suspect]
     Active Substance: RITUXIMAB
     Indication: Diffuse large B-cell lymphoma
     Dosage: UNK UNK, CYCLE
     Route: 065
     Dates: start: 2020
  10. RITUXIMAB [Suspect]
     Active Substance: RITUXIMAB
     Dosage: UNK, 2ND R-CHOP
     Dates: start: 2020

REACTIONS (5)
  - Neutropenia [Unknown]
  - Febrile neutropenia [Unknown]
  - COVID-19 [Unknown]
  - Lymphopenia [Unknown]
  - Pneumonia viral [Unknown]

NARRATIVE: CASE EVENT DATE: 20200101
